FAERS Safety Report 5245391-7 (Version None)
Quarter: 2007Q1

REPORT INFORMATION
  Report Type: 
  Country: None (occurrence: None)
  Receive Date: 20070223
  Receipt Date: 20070213
  Transmission Date: 20070707
  Serious: Yes (Other)
  Sender: FDA-Public Use
  Company Number: ES-SANOFI-SYNTHELABO-A01200701618

PATIENT
  Sex: Male

DRUGS (2)
  1. ELOXATIN [Suspect]
     Indication: METASTATIC NEOPLASM
     Route: 042
     Dates: start: 20070201, end: 20070201
  2. ELOXATIN [Suspect]
     Route: 042
     Dates: start: 20070201, end: 20070201

REACTIONS (13)
  - CONVULSION [None]
  - DIARRHOEA [None]
  - FEELING COLD [None]
  - FEELING HOT [None]
  - HYPERHIDROSIS [None]
  - HYPOTENSION [None]
  - ILLUSION [None]
  - NAUSEA [None]
  - NERVOUSNESS [None]
  - PALLOR [None]
  - PRURITUS [None]
  - TREMOR [None]
  - VOMITING [None]
